FAERS Safety Report 11381671 (Version 1)
Quarter: 2015Q3

REPORT INFORMATION
  Report Type: Spontaneous
  Country: US (occurrence: US)
  Receive Date: 20150814
  Receipt Date: 20150814
  Transmission Date: 20151125
  Serious: No
  Sender: FDA-Public Use
  Company Number: US-GALDERMA-US14003588

PATIENT
  Age: 25 Year
  Sex: Female

DRUGS (2)
  1. DIFFERIN [Suspect]
     Active Substance: ADAPALENE
     Indication: ACNE
     Route: 061
     Dates: start: 201409
  2. CERAVE HYDRATING CLEANSER [Concomitant]
     Active Substance: SALICYLIC ACID
     Indication: THERAPEUTIC SKIN CARE TOPICAL
     Route: 061

REACTIONS (1)
  - Acne [Not Recovered/Not Resolved]

NARRATIVE: CASE EVENT DATE: 201409
